FAERS Safety Report 21731462 (Version 1)
Quarter: 2022Q4

REPORT INFORMATION
  Report Type: Spontaneous
  Country: FR (occurrence: FR)
  Receive Date: 20221215
  Receipt Date: 20221215
  Transmission Date: 20230112
  Serious: Yes (Life-Threatening)
  Sender: FDA-Public Use
  Company Number: None

PATIENT
  Age: 68 Year
  Sex: Male
  Weight: 81 kg

DRUGS (2)
  1. CLOPIDOGREL BESILATE [Suspect]
     Active Substance: CLOPIDOGREL BESILATE
     Indication: Acute myocardial infarction
     Dosage: UNIT DOSE: 75 MG, FREQUENCY TIME : 1 DAY, DURATION : 206 DAY
     Dates: start: 20220321, end: 20221013
  2. ELIQUIS [Suspect]
     Active Substance: APIXABAN
     Indication: Atrial fibrillation
     Dosage: FREQUENCY TIME : 1 DAY, DURATION : 2842 DAYS, UNIT DOSE: 10 MG
     Route: 065
     Dates: start: 20150101, end: 20221013

REACTIONS (1)
  - Subdural haematoma [Recovering/Resolving]

NARRATIVE: CASE EVENT DATE: 20221012
